FAERS Safety Report 21470054 (Version 2)
Quarter: 2022Q4

REPORT INFORMATION
  Report Type: Other
  Country: JP (occurrence: JP)
  Receive Date: 20221018
  Receipt Date: 20221104
  Transmission Date: 20230112
  Serious: Yes (Hospitalization, Other)
  Sender: FDA-Public Use
  Company Number: JP-CHUGAI-2022040505

PATIENT
  Age: 56 Year
  Sex: Female

DRUGS (2)
  1. XELODA [Suspect]
     Active Substance: CAPECITABINE
     Indication: Colon cancer
     Route: 048
  2. OXALIPLATIN [Suspect]
     Active Substance: OXALIPLATIN
     Indication: Colon cancer
     Route: 041

REACTIONS (5)
  - Neutropenic colitis [Recovered/Resolved]
  - Gastrointestinal infection [Recovered/Resolved]
  - Sepsis [Recovered/Resolved]
  - Gastroenteritis eosinophilic [Recovered/Resolved]
  - Febrile neutropenia [Recovered/Resolved]

NARRATIVE: CASE EVENT DATE: 20211228
